FAERS Safety Report 21769074 (Version 1)
Quarter: 2022Q4

REPORT INFORMATION
  Report Type: Spontaneous
  Country: US (occurrence: US)
  Receive Date: 20221222
  Receipt Date: 20221222
  Transmission Date: 20230112
  Serious: No
  Sender: FDA-Public Use
  Company Number: US-GSK-US2022190486

PATIENT
  Age: 68 Year
  Sex: Female
  Weight: 95.25 kg

DRUGS (3)
  1. BECONASE AQ [Suspect]
     Active Substance: BECLOMETHASONE DIPROPIONATE MONOHYDRATE
     Indication: Hypersensitivity
     Dosage: 4 DF, QD, 0.042 MG 2 SPRAYS IN EACH NOSTRIL ONCE DAILY
  2. ATENOLOL [Concomitant]
     Active Substance: ATENOLOL
     Indication: Hypertension
     Dosage: 1 DF, BID, 25MG BY MOUTH ONE IN MORNING AND ONE AT NIGHT
     Route: 048
  3. HUMALOG [Concomitant]
     Active Substance: INSULIN LISPRO
     Indication: Diabetes mellitus
     Dosage: UNK, 75/25 INSULIN PEN FOR DIABETES TYPE 2

REACTIONS (1)
  - Coronavirus infection [Recovered/Resolved]

NARRATIVE: CASE EVENT DATE: 20220801
